FAERS Safety Report 22610202 (Version 1)
Quarter: 2023Q2

REPORT INFORMATION
  Report Type: Report from Study
  Country: US (occurrence: US)
  Receive Date: 20230616
  Receipt Date: 20230616
  Transmission Date: 20230722
  Serious: Yes (Death, Hospitalization)
  Sender: FDA-Public Use
  Company Number: US-ELI_LILLY_AND_COMPANY-US202306009122

PATIENT
  Age: 72 Year
  Sex: Female
  Weight: 67.48 kg

DRUGS (18)
  1. GEMCITABINE HYDROCHLORIDE [Suspect]
     Active Substance: GEMCITABINE HYDROCHLORIDE
     Indication: Pancreatic carcinoma
     Dosage: 1690 MG, CYCLICAL
     Route: 042
     Dates: start: 20210412, end: 20210419
  2. GEMCITABINE HYDROCHLORIDE [Suspect]
     Active Substance: GEMCITABINE HYDROCHLORIDE
     Dosage: 1720 MG, CYCLICAL
     Route: 042
     Dates: start: 20210419, end: 20210426
  3. GEMCITABINE HYDROCHLORIDE [Suspect]
     Active Substance: GEMCITABINE HYDROCHLORIDE
     Dosage: 1630 MG, CYCLICAL
     Route: 042
     Dates: start: 20210510
  4. ZIMBERELIMAB [Concomitant]
     Active Substance: ZIMBERELIMAB
     Indication: Pancreatic carcinoma
     Dosage: 240 MG, Q2W
     Route: 042
     Dates: start: 20210412, end: 20210426
  5. ZIMBERELIMAB [Concomitant]
     Active Substance: ZIMBERELIMAB
     Dosage: 240 MG, Q2W
     Route: 042
     Dates: start: 20210510
  6. PACLITAXEL [Concomitant]
     Active Substance: PACLITAXEL
     Indication: Pancreatic carcinoma
     Dosage: 215 MG, CYCLICAL
     Route: 042
     Dates: start: 20210419, end: 20210419
  7. PACLITAXEL [Concomitant]
     Active Substance: PACLITAXEL
     Dosage: 211 MG, CYCLICAL
     Route: 042
     Dates: start: 20210419, end: 20210426
  8. PACLITAXEL [Concomitant]
     Active Substance: PACLITAXEL
     Dosage: 204 MG, CYCLICAL
     Route: 042
     Dates: start: 20210510
  9. POTASSIUM CHLORIDE [Concomitant]
     Active Substance: POTASSIUM CHLORIDE
     Indication: Hypokalaemia
     Dosage: 30 MEQ, DAILY
     Route: 048
     Dates: start: 20210319
  10. PROCHLORPERAZINE MALEATE [Concomitant]
     Active Substance: PROCHLORPERAZINE MALEATE
     Indication: Nausea
     Dosage: 10 MG, DAILY
     Route: 048
     Dates: start: 20210422
  11. METOCLOPRAMIDE [Concomitant]
     Active Substance: METOCLOPRAMIDE
     Indication: Nausea
     Dosage: 20 MG, DAILY
     Route: 048
     Dates: start: 20210401, end: 20210422
  12. METOCLOPRAMIDE [Concomitant]
     Active Substance: METOCLOPRAMIDE
     Dosage: 20 MG, DAILY
     Route: 048
     Dates: start: 20210423
  13. HYDROXYZINE [Concomitant]
     Active Substance: HYDROXYZINE HYDROCHLORIDE
     Indication: Rash maculo-papular
     Dosage: UNK UNK, UNKNOWN
     Route: 048
     Dates: start: 20210419, end: 20210421
  14. HYDROXYZINE [Concomitant]
     Active Substance: HYDROXYZINE HYDROCHLORIDE
     Dosage: 50 MG, UNKNOWN
     Route: 048
     Dates: start: 20210422
  15. OXYCODONE [Concomitant]
     Active Substance: OXYCODONE
     Indication: Abdominal pain
     Dosage: 10 MG, UNKNOWN
     Route: 048
     Dates: start: 20210401
  16. ONDANSETRON [Concomitant]
     Active Substance: ONDANSETRON
     Indication: Nausea
     Dosage: 4 MG, UNKNOWN
     Route: 048
     Dates: start: 20210412
  17. PANCRELIPASE [Concomitant]
     Active Substance: PANCRELIPASE
     Indication: Dyspepsia
     Dosage: 96000 U, DAILY
     Route: 048
     Dates: start: 20210326
  18. MAGNESIUM OXIDE [Concomitant]
     Active Substance: MAGNESIUM OXIDE
     Indication: Hypomagnesaemia
     Dosage: 800 MG, DAILY
     Route: 048
     Dates: start: 20210423

REACTIONS (7)
  - Sepsis [Fatal]
  - Colitis [Recovered/Resolved with Sequelae]
  - Immune-mediated dermatitis [Recovered/Resolved with Sequelae]
  - Enterocolitis [Unknown]
  - Hypokalaemia [Recovered/Resolved]
  - Diarrhoea [Unknown]
  - Dyspnoea [Recovered/Resolved]

NARRATIVE: CASE EVENT DATE: 20210422
